FAERS Safety Report 8325151-0 (Version None)
Quarter: 2012Q2

REPORT INFORMATION
  Report Type: 
  Country: None (occurrence: None)
  Receive Date: 20120501
  Receipt Date: 20120402
  Transmission Date: 20120825
  Serious: No
  Sender: FDA-Public Use
  Company Number: US-ABBOTT-12P-163-0921403-00

PATIENT
  Sex: Male

DRUGS (3)
  1. CREON [Suspect]
     Indication: CROHN'S DISEASE
  2. CREON [Suspect]
     Indication: GASTROINTESTINAL DISORDER
  3. CREON [Suspect]
     Indication: DYSPEPSIA

REACTIONS (1)
  - DRUG INEFFECTIVE [None]
